FAERS Safety Report 6478361-1 (Version None)
Quarter: 2009Q4

REPORT INFORMATION
  Report Type: 
  Country: None (occurrence: None)
  Receive Date: 20091202
  Receipt Date: 20091116
  Transmission Date: 20100525
  Serious: Yes (Hospitalization)
  Sender: FDA-Public Use
  Company Number: 2009BI038092

PATIENT
  Sex: Female

DRUGS (7)
  1. ZEVALIN [Suspect]
     Indication: NON-HODGKIN'S LYMPHOMA
     Dosage: 900 MGQ;1X;IV
     Route: 042
     Dates: start: 20080523, end: 20080523
  2. CARMUSTINE [Concomitant]
  3. CYTOSINE [Concomitant]
  4. ARABINOSIDE [Concomitant]
  5. ETOPOSIDE [Concomitant]
  6. MELPHALAN [Concomitant]
  7. PREV MEDS [Concomitant]

REACTIONS (6)
  - ANAEMIA [None]
  - GASTROENTERITIS ESCHERICHIA COLI [None]
  - LEUKOPENIA [None]
  - PNEUMONIA KLEBSIELLA [None]
  - STOMATITIS [None]
  - THROMBOCYTOPENIA [None]
